FAERS Safety Report 10811973 (Version 1)
Quarter: 2015Q1

REPORT INFORMATION
  Report Type: Spontaneous
  Country: US (occurrence: None)
  Receive Date: 20150213
  Receipt Date: 20150213
  Transmission Date: 20150721
  Serious: Yes (Disabling, Other)
  Sender: FDA-Public Use
  Company Number: None

PATIENT
  Age: 58 Year
  Sex: Female
  Weight: 61.24 kg

DRUGS (1)
  1. FARXIGA [Suspect]
     Active Substance: DAPAGLIFLOZIN PROPANEDIOL
     Indication: DRUG THERAPY
     Dosage: 1 PILL ONCE DAIL TAKEN BY MOUTH
     Route: 048

REACTIONS (4)
  - Urticaria [None]
  - Unevaluable event [None]
  - Skin discolouration [None]
  - Myalgia [None]

NARRATIVE: CASE EVENT DATE: 20150107
